FAERS Safety Report 17040410 (Version 1)
Quarter: 2019Q4

REPORT INFORMATION
  Report Type: Spontaneous
  Country: US (occurrence: US)
  Receive Date: 20191117
  Receipt Date: 20191117
  Transmission Date: 20200122
  Serious: No
  Sender: FDA-Public Use
  Company Number: US-TORRENT-00008923

PATIENT
  Age: 78 Year
  Sex: Female
  Weight: 64 kg

DRUGS (7)
  1. LOSARTAN. [Suspect]
     Active Substance: LOSARTAN
     Indication: HYPERTENSION
     Dosage: TWICE A DAY, ONE IN NIGHT AND ONE IN MORNING
     Route: 048
     Dates: end: 20190619
  2. AMLODIPINE [Concomitant]
     Active Substance: AMLODIPINE BESYLATE
     Indication: HYPERTENSION
     Dosage: ONE TABLET ONCE A DAY
     Route: 048
  3. INSULIN [Concomitant]
     Active Substance: INSULIN NOS
     Indication: DIABETES MELLITUS
     Dosage: TWICE A DAY
  4. NOVOLIN [Concomitant]
     Active Substance: INSULIN HUMAN
     Indication: DIABETES MELLITUS
     Dosage: 100 UNITS
  5. ISOPHANE [Concomitant]
     Indication: DIABETES MELLITUS
     Dosage: 24 UNITS AND 6 UNITS TOGETHER IN DAY, AND 14 UNITS AND 4 UNITS IN NIGHT
  6. ASPIRIN. [Concomitant]
     Active Substance: ASPIRIN
     Indication: CARDIAC DISORDER
     Dosage: REGULAR ONCE A DAY
  7. HUMULIN NOS [Concomitant]
     Active Substance: INSULIN HUMAN
     Indication: DIABETES MELLITUS
     Dosage: UNKNOWN

REACTIONS (2)
  - Intentional dose omission [Unknown]
  - Pruritus [Not Recovered/Not Resolved]

NARRATIVE: CASE EVENT DATE: 20190619
